FAERS Safety Report 6430932-4 (Version None)
Quarter: 2009Q4

REPORT INFORMATION
  Report Type: 
  Country: None (occurrence: None)
  Receive Date: 20091105
  Receipt Date: 20091105
  Transmission Date: 20100525
  Serious: Yes (Other)
  Sender: FDA-Public Use
  Company Number: None

PATIENT
  Age: 56 Year
  Sex: Female
  Weight: 56.6996 kg

DRUGS (4)
  1. PROAIR HFA [Suspect]
     Indication: ASTHMA
     Dosage: 2 PUFFS 4 TIMES DAILY INHAL
     Dates: start: 20090401, end: 20090501
  2. PROAIR HFA [Suspect]
     Indication: PROPHYLAXIS
     Dosage: 2 PUFFS 4 TIMES DAILY INHAL
     Dates: start: 20090401, end: 20090501
  3. PROAIR HFA [Suspect]
     Indication: ASTHMA
     Dates: start: 20090815, end: 20090915
  4. PROAIR HFA [Suspect]
     Indication: PROPHYLAXIS
     Dates: start: 20090815, end: 20090915

REACTIONS (2)
  - DRUG INEFFECTIVE [None]
  - PRODUCT QUALITY ISSUE [None]
